FAERS Safety Report 4405975-2 (Version None)
Quarter: 2004Q3

REPORT INFORMATION
  Report Type: 
  Country: None (occurrence: None)
  Receive Date: 20040723
  Receipt Date: 20040226
  Transmission Date: 20050211
  Serious: No
  Sender: FDA-Public Use
  Company Number: US-GLAXOSMITHKLINE-A0500129A

PATIENT
  Age: 58 Year
  Sex: Female

DRUGS (5)
  1. AVANDIA [Suspect]
     Dosage: 8MG PER DAY
     Route: 048
     Dates: start: 20010101
  2. NEURONTIN [Concomitant]
  3. LIPITOR [Concomitant]
  4. ACCUPRIL [Concomitant]
  5. POTASSIUM [Concomitant]

REACTIONS (4)
  - MUSCLE CRAMP [None]
  - MUSCLE SPASMS [None]
  - OEDEMA PERIPHERAL [None]
  - WEIGHT INCREASED [None]
